FAERS Safety Report 7911984-9 (Version None)
Quarter: 2011Q4

REPORT INFORMATION
  Report Type: 
  Country: None (occurrence: None)
  Receive Date: 20111114
  Receipt Date: 20111024
  Transmission Date: 20120403
  Serious: Yes (Hospitalization)
  Sender: FDA-Public Use
  Company Number: AT-ROCHE-1007005

PATIENT
  Age: 72 Year
  Sex: Male

DRUGS (10)
  1. HMG-COA REDUCTASE INHIBITOR NOS [Concomitant]
  2. ASPIRIN [Concomitant]
  3. PANTOPRAZOLE [Concomitant]
  4. NEBIVOLOL HCL [Concomitant]
  5. HYDROCHLOROTHIAZIDE [Concomitant]
  6. NORVASC [Concomitant]
  7. VEMURAFENIB [Suspect]
     Indication: METASTATIC MALIGNANT MELANOMA
     Route: 048
     Dates: start: 20110907
  8. KEPPRA [Concomitant]
     Dates: start: 20110101
  9. METOCLOPRAMIDE HYDROCHLORIDE [Concomitant]
     Dosage: 75/DROPS
     Dates: start: 20110920, end: 20110925
  10. FORTECORTIN (AUSTRIA) [Concomitant]
     Dosage: 1-2/MG
     Dates: start: 20110926

REACTIONS (1)
  - VERTIGO [None]
